FAERS Safety Report 17623015 (Version 1)
Quarter: 2020Q2

REPORT INFORMATION
  Report Type: Spontaneous
  Country: US (occurrence: US)
  Receive Date: 20200403
  Receipt Date: 20200403
  Transmission Date: 20200713
  Serious: No
  Sender: FDA-Public Use
  Company Number: None

PATIENT
  Age: 75 Year
  Sex: Female
  Weight: 81 kg

DRUGS (15)
  1. SIMVASTATIN 20MG [Concomitant]
     Active Substance: SIMVASTATIN
  2. TIMOLOL 5MG [Concomitant]
  3. VENLAFAXINE 50MG [Concomitant]
     Active Substance: VENLAFAXINE HYDROCHLORIDE
  4. COQ10 [Concomitant]
     Active Substance: UBIDECARENONE
  5. IMODIUM AD [Concomitant]
     Active Substance: LOPERAMIDE HYDROCHLORIDE
  6. AYR SALINE NOSE DROP [Concomitant]
  7. EQUATE EYE OINTMENT [Concomitant]
  8. SPIRONOLACTONE 50MG [Concomitant]
     Active Substance: SPIRONOLACTONE
  9. SIMETHICONE 180MG [Concomitant]
  10. REFRESH OPTIVE [Concomitant]
     Active Substance: CARBOXYMETHYLCELLULOSE SODIUM\GLYCERIN
  11. CAPECITABINE. [Suspect]
     Active Substance: CAPECITABINE
  12. ECONAZOLE NITRATE 1% OINT [Concomitant]
  13. FISH OIL [Concomitant]
     Active Substance: FISH OIL
  14. REPHRESH PRO -B [Concomitant]
  15. FUROSEMIDE 20MG [Concomitant]
     Active Substance: FUROSEMIDE

REACTIONS (1)
  - Coronavirus infection [None]

NARRATIVE: CASE EVENT DATE: 20200403
